FAERS Safety Report 5284867-3 (Version None)
Quarter: 2007Q1

REPORT INFORMATION
  Report Type: 
  Country: None (occurrence: None)
  Receive Date: 20061229
  Receipt Date: 20060912
  Transmission Date: 20070707
  Serious: Yes (Death)
  Sender: FDA-Public Use
  Company Number: PHEH2006US10126

PATIENT
  Age: 53 Year
  Sex: Male
  Weight: 80.7 kg

DRUGS (11)
  1. CLOZARIL [Suspect]
     Dosage: SEE IMAGE
     Dates: start: 19940101, end: 19980101
  2. CLOZARIL [Suspect]
     Dosage: SEE IMAGE
     Dates: start: 19980101
  3. TOPAMAX [Concomitant]
  4. RISPERDAL [Concomitant]
  5. ZOLOFT [Concomitant]
  6. DEPAKOTE [Concomitant]
  7. WELLBUTRIN XL [Concomitant]
  8. FIBERCON (POLYCARBOPHIL CALCIUM) [Concomitant]
  9. COLACE (DOCUSATE SODIUM) [Concomitant]
  10. INDERAL LA [Concomitant]
  11. TRICOR [Concomitant]

REACTIONS (13)
  - AKATHISIA [None]
  - ANGER [None]
  - BLOOD CHOLESTEROL INCREASED [None]
  - BLOOD TRIGLYCERIDES INCREASED [None]
  - CONFUSIONAL STATE [None]
  - DEATH [None]
  - FATIGUE [None]
  - FEELING ABNORMAL [None]
  - HEADACHE [None]
  - RESTLESSNESS [None]
  - SMOKER [None]
  - SOCIAL AVOIDANT BEHAVIOUR [None]
  - SUICIDAL IDEATION [None]
